FAERS Safety Report 6840738-X (Version None)
Quarter: 2010Q3

REPORT INFORMATION
  Report Type: 
  Country: None (occurrence: None)
  Receive Date: 20100714
  Receipt Date: 20100629
  Transmission Date: 20110219
  Serious: Yes (Other)
  Sender: FDA-Public Use
  Company Number: BR-PFIZER INC-2010080841

PATIENT
  Age: 67 Year
  Sex: Female

DRUGS (10)
  1. XALATAN [Suspect]
     Indication: GLAUCOMA
     Dosage: 3 UG, 1X/DAY, 1 DROP IN EACH EYE AT NIGHT
     Route: 047
     Dates: start: 20050101
  2. XALATAN [Suspect]
     Indication: GLAUCOMA
     Dosage: [LATANOPROST 3UG]/[TIMOLOL MALEATE 300UG], 1X/DAY, 1 DROP IN EACH EYE AT NIGHT
     Route: 047
     Dates: start: 20100628, end: 20100628
  3. OMEPRAZOLE [Concomitant]
     Indication: GASTRIC DISORDER
     Dosage: 20 MG, 1X/DAY, 1 TABLET IN THE MORNING
  4. VINPOCETINE [Concomitant]
     Indication: MEMORY IMPAIRMENT
     Dosage: 5 MG, 1X/DAY, 1 TABLET IN THE MORNING
  5. TIBOLONE [Concomitant]
     Indication: HORMONE LEVEL ABNORMAL
     Dosage: 1.25 MG, 1X/DAY, 1 TABLET IN THE MORNING
  6. TARGIFOR C [Concomitant]
     Indication: INFECTION PROPHYLAXIS
     Dosage: 1 G, 1X/DAY, 1 TABLET
  7. DEPAKOTE ER [Concomitant]
     Indication: MIGRAINE
     Dosage: 500 MG, 1X/DAY AFTER DINNER
  8. RIVOTRIL [Concomitant]
     Dosage: 0.5 MG, 1X/DAY, 1 TABLET NIGHTLY
  9. ASPIRIN [Concomitant]
     Indication: ANTICOAGULANT THERAPY
     Dosage: 1 TABLET PER DAY
  10. DOMPERIDONE [Concomitant]
     Dosage: 10 MG, AS NEEDED

REACTIONS (5)
  - ASTHMA [None]
  - DRUG NAME CONFUSION [None]
  - HYPERTENSION [None]
  - INFLUENZA [None]
  - WRONG DRUG ADMINISTERED [None]
